FAERS Safety Report 9528063 (Version 2)
Quarter: 2013Q4

REPORT INFORMATION
  Report Type: Report from Study
  Country: US (occurrence: US)
  Receive Date: 20130917
  Receipt Date: 20131126
  Transmission Date: 20140711
  Serious: Yes (Other)
  Sender: FDA-Public Use
  Company Number: US-ELI_LILLY_AND_COMPANY-US201309001322

PATIENT
  Sex: Female

DRUGS (1)
  1. TADALAFIL [Suspect]
     Dosage: 20 MG, QD
     Route: 048
     Dates: start: 20130827, end: 20130904

REACTIONS (4)
  - Syncope [Recovered/Resolved]
  - Hypotension [Recovered/Resolved]
  - Dizziness [Recovered/Resolved]
  - Muscular weakness [Recovered/Resolved]
